FAERS Safety Report 9307027 (Version 3)
Quarter: 2014Q3

REPORT INFORMATION
  Report Type: Spontaneous
  Country: US (occurrence: US)
  Receive Date: 20130523
  Receipt Date: 20140716
  Transmission Date: 20150326
  Serious: Yes (Other)
  Sender: FDA-Public Use
  Company Number: US-009507513-1305USA012261

PATIENT
  Sex: Male

DRUGS (4)
  1. FINASTERIDE. [Suspect]
     Active Substance: FINASTERIDE
     Indication: PROSTATOMEGALY
  2. PROSCAR [Suspect]
     Active Substance: FINASTERIDE
     Indication: BENIGN PROSTATIC HYPERPLASIA
     Dosage: 5 MG, UNK
     Route: 048
     Dates: start: 20090113, end: 20111004
  3. PROSCAR [Suspect]
     Active Substance: FINASTERIDE
     Indication: PROSTATOMEGALY
  4. FINASTERIDE. [Suspect]
     Active Substance: FINASTERIDE
     Indication: BENIGN PROSTATIC HYPERPLASIA
     Dosage: 5 MG, UNK
     Route: 048
     Dates: start: 20090113, end: 20111004

REACTIONS (17)
  - Sexual dysfunction [Not Recovered/Not Resolved]
  - Gynaecomastia [Unknown]
  - Spinal fusion surgery [Unknown]
  - Skin cancer [Unknown]
  - Gynaecomastia [Not Recovered/Not Resolved]
  - Nasopharyngitis [Unknown]
  - Epididymal cyst [Unknown]
  - Diarrhoea [Unknown]
  - Back pain [Unknown]
  - Paraesthesia [Recovered/Resolved]
  - Prostatitis [Unknown]
  - Hydrocele [Unknown]
  - Erectile dysfunction [Not Recovered/Not Resolved]
  - Fatigue [Unknown]
  - Prostatomegaly [Unknown]
  - Spinal fusion surgery [Unknown]
  - Back pain [Unknown]

NARRATIVE: CASE EVENT DATE: 2009
